FAERS Safety Report 12828432 (Version 1)
Quarter: 2016Q4

REPORT INFORMATION
  Report Type: Spontaneous
  Country: CA (occurrence: CA)
  Receive Date: 20161007
  Receipt Date: 20161007
  Transmission Date: 20170207
  Serious: Yes (Other)
  Sender: FDA-Public Use
  Company Number: CA-TEVA-698872USA

PATIENT
  Sex: Female

DRUGS (1)
  1. PLAN B [Suspect]
     Active Substance: LEVONORGESTREL
     Route: 065
     Dates: start: 20160919

REACTIONS (3)
  - Haemorrhage [Not Recovered/Not Resolved]
  - Malaise [Not Recovered/Not Resolved]
  - Muscle spasms [Not Recovered/Not Resolved]

NARRATIVE: CASE EVENT DATE: 201609
